FAERS Safety Report 15294931 (Version 1)
Quarter: 2018Q3

REPORT INFORMATION
  Report Type: Spontaneous
  Country: US (occurrence: US)
  Receive Date: 20180807
  Receipt Date: 20180807
  Transmission Date: 20181010
  Serious: No
  Sender: FDA-Public Use
  Company Number: None

PATIENT

DRUGS (1)
  1. HYOSCYAMINE 0.125MG TAB SL VIRTUS PHARMACE [Suspect]
     Active Substance: HYOSCYAMINE

REACTIONS (4)
  - Gingival pain [None]
  - Mastication disorder [None]
  - Oral pain [None]
  - Toothache [None]

NARRATIVE: CASE EVENT DATE: 20180713
